FAERS Safety Report 4816890-4 (Version None)
Quarter: 2005Q4

REPORT INFORMATION
  Report Type: 
  Country: None (occurrence: None)
  Receive Date: 20051031
  Receipt Date: 20051031
  Transmission Date: 20060501
  Serious: Yes (Hospitalization)
  Sender: FDA-Public Use
  Company Number: None

PATIENT
  Age: 76 Year
  Sex: Male

DRUGS (5)
  1. WARFARIN [Suspect]
     Dosage: 5 MG QD
     Dates: start: 20050805
  2. ASPIRIN [Concomitant]
  3. LORATADINE [Concomitant]
  4. OMEPRAZOLE [Concomitant]
  5. SERTRALINE HCL [Concomitant]

REACTIONS (1)
  - EPISTAXIS [None]
